FAERS Safety Report 16763803 (Version 2)
Quarter: 2019Q4

REPORT INFORMATION
  Report Type: Spontaneous
  Country: JP (occurrence: JP)
  Receive Date: 20190902
  Receipt Date: 20191004
  Transmission Date: 20200122
  Serious: Yes (Hospitalization, Disabling, Other)
  Sender: FDA-Public Use
  Company Number: JP-PFIZER INC-2019308186

PATIENT
  Age: 93 Year
  Sex: Male
  Weight: 56 kg

DRUGS (11)
  1. TRAZENTA [Concomitant]
     Active Substance: LINAGLIPTIN
     Indication: DIABETES MELLITUS
     Dosage: 5 MG, 1X/DAY
     Route: 048
     Dates: start: 20190704
  2. STARSIS [Concomitant]
     Active Substance: NATEGLINIDE
     Indication: DIABETES MELLITUS
     Dosage: 30 MG, 1X/DAY
     Route: 048
     Dates: start: 20190704
  3. CALONAL [Concomitant]
     Active Substance: ACETAMINOPHEN
     Indication: SPINAL STENOSIS
     Dosage: 400 MG, 3X/DAY
     Route: 048
     Dates: start: 20190704
  4. INSULIN GLARGINE [Concomitant]
     Active Substance: INSULIN GLARGINE
     Indication: DIABETES MELLITUS
     Dosage: 3 DF, 1X/DAY
     Route: 058
     Dates: start: 20190628
  5. BAYASPIRIN [Concomitant]
     Active Substance: ASPIRIN
     Indication: CEREBRAL INFARCTION
     Dosage: 100 MG, 1X/DAY
     Route: 048
     Dates: start: 20190704, end: 20190710
  6. LANSOPRAZOLE. [Concomitant]
     Active Substance: LANSOPRAZOLE
     Dosage: 15 MG, 1X/DAY
     Route: 048
     Dates: start: 20190704, end: 20190724
  7. METGLUCO [Concomitant]
     Active Substance: METFORMIN HYDROCHLORIDE
     Indication: DIABETES MELLITUS
     Dosage: 250 MG, 3X/DAY
     Route: 048
     Dates: start: 20190704
  8. LYRICA [Suspect]
     Active Substance: PREGABALIN
     Indication: SPINAL STENOSIS
     Dosage: 25 MG, 1X/DAY
     Route: 048
     Dates: start: 20190707, end: 20190708
  9. OPALMON [Suspect]
     Active Substance: LIMAPROST
     Indication: SPINAL STENOSIS
     Dosage: 5 MG, 3X/DAY
     Route: 048
     Dates: start: 2019, end: 20190708
  10. OPALMON [Suspect]
     Active Substance: LIMAPROST
     Dosage: 5 MG, 3X/DAY
     Route: 048
     Dates: start: 20190713
  11. DONEPEZIL HYDROCHLORIDE. [Concomitant]
     Active Substance: DONEPEZIL HYDROCHLORIDE
     Indication: DEMENTIA
     Dosage: 5 MG, 1X/DAY
     Route: 048
     Dates: start: 20190704

REACTIONS (11)
  - Nausea [Recovered/Resolved]
  - Vomiting [Recovered/Resolved]
  - Blood pressure fluctuation [Unknown]
  - Hiatus hernia [Unknown]
  - Decreased appetite [Recovered/Resolved]
  - Gastrointestinal submucosal tumour [Not Recovered/Not Resolved]
  - Muscular weakness [Recovering/Resolving]
  - Gastrooesophageal reflux disease [Recovered/Resolved]
  - Chronic gastritis [Unknown]
  - Gait disturbance [Recovering/Resolving]
  - Blood lactate dehydrogenase increased [Unknown]

NARRATIVE: CASE EVENT DATE: 20190707
